FAERS Safety Report 24334965 (Version 1)
Quarter: 2024Q3

REPORT INFORMATION
  Report Type: Spontaneous
  Country: US (occurrence: US)
  Receive Date: 20240918
  Receipt Date: 20240918
  Transmission Date: 20241017
  Serious: No
  Sender: PURDUE
  Company Number: US-NAPPMUNDI-GBR-2024-0119633

PATIENT
  Sex: Female

DRUGS (1)
  1. BUPRENORPHINE [Suspect]
     Active Substance: BUPRENORPHINE
     Indication: Pain management
     Dosage: 15 MCG/HR, WEEKLY
     Route: 062
     Dates: start: 2024

REACTIONS (5)
  - Abdominal rigidity [Unknown]
  - Back pain [Unknown]
  - Product adhesion issue [Unknown]
  - Drug ineffective [Unknown]
  - Product dispensing issue [Unknown]

NARRATIVE: CASE EVENT DATE: 20240101
